FAERS Safety Report 6866307-3 (Version None)
Quarter: 2010Q2

REPORT INFORMATION
  Report Type: 
  Country: None (occurrence: None)
  Receive Date: 20100602
  Receipt Date: 20090731
  Transmission Date: 20101027
  Serious: Yes (Hospitalization, Other)
  Sender: FDA-Public Use
  Company Number: 204378USA

PATIENT
  Age: 83 Year
  Sex: Male

DRUGS (5)
  1. GABAPENTIN [Suspect]
     Indication: SCROTAL PAIN
     Dosage: 900 MG (300 MG, 3 IN 1 D), ORAL
     Route: 048
     Dates: start: 20070713
  2. PREGABALIN [Suspect]
     Indication: SCROTAL PAIN
     Dosage: 150 MG (150 MG, 1 IN 1D), ORAL
     Route: 048
     Dates: start: 20070101
  3. VITAMINS [Concomitant]
  4. FISH OIL [Concomitant]
  5. ESCITALOPRAM OXALATE [Concomitant]

REACTIONS (12)
  - ANXIETY [None]
  - AORTIC ANEURYSM [None]
  - BASAL CELL CARCINOMA [None]
  - DRUG INEFFECTIVE [None]
  - HEPATIC ARTERY ANEURYSM [None]
  - JOINT SWELLING [None]
  - MALAISE [None]
  - NASAL DISORDER [None]
  - SKIN CANCER [None]
  - SQUAMOUS CELL CARCINOMA OF SKIN [None]
  - VISION BLURRED [None]
  - WEIGHT DECREASED [None]
